FAERS Safety Report 13747035 (Version 1)
Quarter: 2017Q3

REPORT INFORMATION
  Report Type: Spontaneous
  Country: US (occurrence: US)
  Receive Date: 20170712
  Receipt Date: 20170712
  Transmission Date: 20171127
  Serious: No
  Sender: FDA-Public Use
  Company Number: US-BAYER-2017-133704

PATIENT
  Age: 20 Year
  Sex: Female

DRUGS (1)
  1. OCELLA [Suspect]
     Active Substance: DROSPIRENONE\ETHINYL ESTRADIOL
     Dosage: 3MG/0.03MG
     Route: 048

REACTIONS (2)
  - Rash [None]
  - Hypersensitivity [None]

NARRATIVE: CASE EVENT DATE: 201707
